FAERS Safety Report 9015198 (Version 3)
Quarter: 2013Q1

REPORT INFORMATION
  Report Type: Spontaneous
  Country: US (occurrence: None)
  Receive Date: 20130103
  Receipt Date: 20130329
  Transmission Date: 20140127
  Serious: Yes (Death)
  Sender: FDA-Public Use
  Company Number: JPI-P-028800

PATIENT
  Age: 39 Year
  Sex: Female

DRUGS (5)
  1. XYREM (500 MILLIGRAM/MILLILITERS, SOLUTION) (SODIUM OXYBATE) [Suspect]
     Indication: HYPERSOMNIA
     Dosage: 5 GM (2.5 GM,2 IN 1 D),ORAL
     Route: 048
     Dates: start: 20120924
  2. CLONAZEPAM [Concomitant]
  3. HYDROMORPHONE [Concomitant]
  4. FENTANYL [Concomitant]
  5. AMBIEN [Concomitant]

REACTIONS (1)
  - Adverse event [None]
